FAERS Safety Report 23722504 (Version 1)
Quarter: 2024Q2

REPORT INFORMATION
  Report Type: Spontaneous
  Country: CA (occurrence: CA)
  Receive Date: 20240409
  Receipt Date: 20240409
  Transmission Date: 20240716
  Serious: Yes (Other)
  Sender: FDA-Public Use
  Company Number: CA-TEVA-VS-3177626

PATIENT
  Sex: Female

DRUGS (1)
  1. PREDNISONE [Suspect]
     Active Substance: PREDNISONE
     Route: 065

REACTIONS (4)
  - Gestational diabetes [Unknown]
  - Maternal exposure during pregnancy [Unknown]
  - Inflammatory bowel disease [Unknown]
  - Arthritis [Unknown]
